FAERS Safety Report 10658100 (Version 6)
Quarter: 2018Q3

REPORT INFORMATION
  Report Type: Report from Study
  Country: US (occurrence: US)
  Receive Date: 20141217
  Receipt Date: 20180713
  Transmission Date: 20181010
  Serious: Yes (Hospitalization, Other)
  Sender: FDA-Public Use
  Company Number: US-SA-2014SA036658

PATIENT
  Age: 68 Year
  Sex: Female

DRUGS (3)
  1. TERIFLUNOMIDE [Suspect]
     Active Substance: TERIFLUNOMIDE
     Indication: MULTIPLE SCLEROSIS
     Dosage: UNK UNK,QD
     Route: 048
     Dates: start: 20140319
  2. INDERAL [Concomitant]
     Active Substance: PROPRANOLOL HYDROCHLORIDE
     Dosage: UNK
  3. ALLOPURINOL. [Concomitant]
     Active Substance: ALLOPURINOL
     Dosage: UNK

REACTIONS (26)
  - Gait disturbance [Unknown]
  - Tinnitus [Unknown]
  - Pain [Unknown]
  - Blood potassium increased [Unknown]
  - Chronic sinusitis [Unknown]
  - Drug dose omission [Unknown]
  - Hot flush [Unknown]
  - Fatigue [Unknown]
  - Nerve injury [Unknown]
  - Renal function test abnormal [Recovered/Resolved]
  - Hypoaesthesia [Unknown]
  - Uterine dilation and curettage [Unknown]
  - Swelling face [Recovered/Resolved]
  - Abdominal discomfort [Recovered/Resolved]
  - Hyperhidrosis [Unknown]
  - Memory impairment [Unknown]
  - Muscular weakness [Unknown]
  - Feeling abnormal [Unknown]
  - Musculoskeletal discomfort [Unknown]
  - Hypertension [Recovering/Resolving]
  - Hallucination, auditory [Unknown]
  - Headache [Not Recovered/Not Resolved]
  - Unevaluable event [Unknown]
  - Palpitations [Unknown]
  - Asthenia [Unknown]
  - Chromaturia [Unknown]

NARRATIVE: CASE EVENT DATE: 201403
